FAERS Safety Report 9497645 (Version 1)
Quarter: 2013Q3

REPORT INFORMATION
  Report Type: Spontaneous
  Country: US (occurrence: US)
  Receive Date: 20130904
  Receipt Date: 20130904
  Transmission Date: 20140515
  Serious: No
  Sender: FDA-Public Use
  Company Number: US-AMGEN-USASP2013061450

PATIENT
  Age: 61 Year
  Sex: Female

DRUGS (2)
  1. ENBREL [Suspect]
     Indication: PSORIATIC ARTHROPATHY
     Dosage: UNK
     Route: 065
     Dates: start: 201205, end: 201306
  2. METHOTREXATE [Concomitant]
     Dosage: UNK

REACTIONS (3)
  - Headache [Unknown]
  - Skin lesion [Unknown]
  - Pruritus [Unknown]
